FAERS Safety Report 24429440 (Version 1)
Quarter: 2024Q4

REPORT INFORMATION
  Report Type: Spontaneous
  Country: TH (occurrence: TH)
  Receive Date: 20241011
  Receipt Date: 20241011
  Transmission Date: 20250114
  Serious: Yes (Other)
  Sender: KOWA PHARM
  Company Number: TH-KOWA-24JP002495AA

PATIENT
  Age: 60 Year
  Sex: Male

DRUGS (1)
  1. LIVALO [Suspect]
     Active Substance: PITAVASTATIN CALCIUM
     Indication: Dyslipidaemia
     Dosage: UNK, UNK
     Route: 048

REACTIONS (2)
  - Inclusion body myositis [Unknown]
  - Immune-mediated myositis [Unknown]
